FAERS Safety Report 6409434-7 (Version None)
Quarter: 2009Q4

REPORT INFORMATION
  Report Type: 
  Country: None (occurrence: None)
  Receive Date: 20091019
  Receipt Date: 20091019
  Transmission Date: 20100525
  Serious: No
  Sender: FDA-Public Use
  Company Number: None

PATIENT
  Age: 71 Year
  Sex: Female
  Weight: 59.8748 kg

DRUGS (4)
  1. AREDIA [Suspect]
     Indication: OSTEOPENIA
     Dosage: USUAL IV AMOUNT ONE TIME IV DRIP
     Route: 041
     Dates: start: 20090815, end: 20090815
  2. OMEPRAZOLE [Concomitant]
  3. PRAVASTATIN [Concomitant]
  4. VITAMINS [Concomitant]

REACTIONS (10)
  - ASCITES [None]
  - ASTHENIA [None]
  - BLOOD BILIRUBIN INCREASED [None]
  - FATIGUE [None]
  - GASTROOESOPHAGEAL REFLUX DISEASE [None]
  - HAEMATURIA [None]
  - HEPATIC ENZYME INCREASED [None]
  - MALAISE [None]
  - NAUSEA [None]
  - RETCHING [None]
